FAERS Safety Report 9955317 (Version 1)
Quarter: 2014Q1

REPORT INFORMATION
  Report Type: Report from Study
  Country: US (occurrence: US)
  Receive Date: 20140304
  Receipt Date: 20140304
  Transmission Date: 20141002
  Serious: No
  Sender: FDA-Public Use
  Company Number: US-ABBVIE-13P-163-1078239-00

PATIENT
  Age: 52 Year
  Sex: Female

DRUGS (6)
  1. HUMIRA [Suspect]
     Indication: RHEUMATOID ARTHRITIS
     Dates: start: 20130128, end: 20130211
  2. ACTONEL [Concomitant]
     Indication: OSTEOPENIA
  3. PERFOROMIST [Concomitant]
     Indication: INTERSTITIAL LUNG DISEASE
     Dosage: DAILY
  4. BUDESONIDE VIA NEBULIZER [Concomitant]
     Indication: INTERSTITIAL LUNG DISEASE
     Dosage: DAILY
  5. ZYRTEC [Concomitant]
     Indication: SEASONAL ALLERGY
     Dosage: DAILY
  6. LUMIGAN [Concomitant]
     Indication: GLAUCOMA
     Dosage: EACH EYE AT BEDTIME

REACTIONS (3)
  - Wheezing [Recovering/Resolving]
  - Rash [Recovering/Resolving]
  - Nasopharyngitis [Recovering/Resolving]
